FAERS Safety Report 14950927 (Version 1)
Quarter: 2018Q2

REPORT INFORMATION
  Report Type: Spontaneous
  Country: FR (occurrence: FR)
  Receive Date: 20180530
  Receipt Date: 20180530
  Transmission Date: 20180711
  Serious: Yes (Hospitalization)
  Sender: FDA-Public Use
  Company Number: FR-TEVA-2018-FR-899608

PATIENT
  Age: 21 Year
  Sex: Female

DRUGS (3)
  1. IMOVANE [Suspect]
     Active Substance: ZOPICLONE
     Route: 048
     Dates: start: 20180115, end: 20180115
  2. VENLAFAXINE [Suspect]
     Active Substance: VENLAFAXINE HYDROCHLORIDE
     Indication: DEPRESSION
     Dosage: UNKNOWN
     Route: 048
     Dates: start: 20180116, end: 20180116
  3. ALCOOL [Suspect]
     Active Substance: ALCOHOL
     Dosage: UNKNOWN
     Route: 048
     Dates: start: 20180116, end: 20180116

REACTIONS (1)
  - Poisoning deliberate [Recovered/Resolved]

NARRATIVE: CASE EVENT DATE: 20180115
